FAERS Safety Report 19423189 (Version 1)
Quarter: 2021Q2

REPORT INFORMATION
  Report Type: Spontaneous
  Country: US (occurrence: US)
  Receive Date: 20210616
  Receipt Date: 20210616
  Transmission Date: 20210717
  Serious: No
  Sender: FDA-Public Use
  Company Number: US-EYEVANCE PHARMACEUTICALS-2021EYE00045

PATIENT
  Age: 24 Year
  Sex: Female
  Weight: 77.1 kg

DRUGS (3)
  1. UNSPECIFIED THYROID MEDICINE [Concomitant]
  2. ZERVIATE [Suspect]
     Active Substance: CETIRIZINE HYDROCHLORIDE
     Indication: EYE ALLERGY
     Dosage: 1 GTT, 2X/DAY IN EACH EYE
     Route: 047
     Dates: start: 20210422, end: 20210426
  3. GABAPENTIN. [Concomitant]
     Active Substance: GABAPENTIN

REACTIONS (3)
  - Off label use [Recovered/Resolved]
  - Eye pain [Recovered/Resolved]
  - Eye irritation [Recovered/Resolved]

NARRATIVE: CASE EVENT DATE: 20210422
